FAERS Safety Report 11616138 (Version 1)
Quarter: 2015Q4

REPORT INFORMATION
  Report Type: Spontaneous
  Country: CN (occurrence: CN)
  Receive Date: 20151009
  Receipt Date: 20151009
  Transmission Date: 20160304
  Serious: Yes (Hospitalization)
  Sender: FDA-Public Use
  Company Number: CN-NOVOPROD-460588

PATIENT
  Age: 70 Year
  Sex: Female
  Weight: 50 kg

DRUGS (2)
  1. NOVOMIX 30 PENFILL [Suspect]
     Active Substance: INSULIN ASPART
     Indication: TYPE 2 DIABETES MELLITUS
     Dosage: 8 U, BID
     Route: 065
     Dates: start: 201506, end: 20150814
  2. SPIRONOLACTONE. [Concomitant]
     Active Substance: SPIRONOLACTONE
     Indication: PERICARDIAL DISEASE
     Dosage: 1-2 TAB QD FOR 2-3 YEARS
     Route: 048

REACTIONS (6)
  - Gait disturbance [Unknown]
  - Pyrexia [Recovering/Resolving]
  - Injection site erythema [Unknown]
  - Cardiac failure [Recovered/Resolved]
  - Injection site pruritus [Unknown]
  - Injection site induration [Unknown]
